FAERS Safety Report 16265165 (Version 1)
Quarter: 2019Q2

REPORT INFORMATION
  Report Type: Spontaneous
  Country: US (occurrence: US)
  Receive Date: 20190328
  Receipt Date: 20190328
  Transmission Date: 20190711
  Serious: Yes (Other)
  Sender: FDA-Public Use
  Company Number: None

PATIENT
  Age: 54 Year
  Sex: Female
  Weight: 65.2 kg

DRUGS (1)
  1. CHANTIX [Suspect]
     Active Substance: VARENICLINE TARTRATE
     Indication: SMOKING CESSATION THERAPY
     Route: 048
     Dates: start: 20190109, end: 201903

REACTIONS (7)
  - Abnormal behaviour [None]
  - Fatigue [None]
  - Decreased interest [None]
  - Seizure like phenomena [None]
  - Feeling abnormal [None]
  - Memory impairment [None]
  - Indifference [None]
